FAERS Safety Report 8396713-X (Version None)
Quarter: 2012Q2

REPORT INFORMATION
  Report Type: 
  Country: None (occurrence: None)
  Receive Date: 20120530
  Receipt Date: 20120525
  Transmission Date: 20120825
  Serious: Yes (Other)
  Sender: FDA-Public Use
  Company Number: FR-PFIZER INC-2012123410

PATIENT
  Age: 63 Year
  Sex: Male
  Weight: 70 kg

DRUGS (3)
  1. AMLODIPINE/VALSARTAN [Concomitant]
     Indication: HYPERTENSION
     Dosage: 10 MG, 1X/DAY
     Route: 048
  2. CRIZOTINIB [Suspect]
     Dosage: UNK
     Route: 048
     Dates: start: 20120524
  3. CRIZOTINIB [Suspect]
     Indication: BRONCHIAL NEOPLASM
     Dosage: 250 MG, 2X/DAY
     Route: 048
     Dates: start: 20120417, end: 20120516

REACTIONS (3)
  - LIVER FUNCTION TEST ABNORMAL [None]
  - OEDEMA PERIPHERAL [None]
  - RENAL IMPAIRMENT [None]
